FAERS Safety Report 22153680 (Version 1)
Quarter: 2023Q1

REPORT INFORMATION
  Report Type: Report from Study
  Country: US (occurrence: US)
  Receive Date: 20230330
  Receipt Date: 20230330
  Transmission Date: 20230418
  Serious: Yes (Other)
  Sender: FDA-Public Use
  Company Number: US-ABBVIE-4707885

PATIENT
  Age: 73 Year
  Sex: Male
  Weight: 85 kg

DRUGS (13)
  1. VENCLEXTA [Suspect]
     Active Substance: VENETOCLAX
     Indication: Pancytopenia
     Dosage: THEN 2 TABLETS ON DAY 2
     Route: 048
  2. VENCLEXTA [Suspect]
     Active Substance: VENETOCLAX
     Indication: Pancytopenia
     Dosage: TAKE 4 TABLET(S) BY MOUTH EVERY DAY ON DAYS 1-14 EVERY 28 DAY(S)
     Route: 048
     Dates: start: 202104
  3. VENCLEXTA [Suspect]
     Active Substance: VENETOCLAX
     Indication: Pancytopenia
     Dosage: TAKE 1 TABLET BY MOUTH ON DAY 1
     Route: 048
  4. VENCLEXTA [Suspect]
     Active Substance: VENETOCLAX
     Indication: Pancytopenia
     Dosage: THEN 4 TABLETS ON DAYS 3 - 14
     Route: 048
  5. VENCLEXTA [Suspect]
     Active Substance: VENETOCLAX
     Indication: Pancytopenia
     Dosage: TAKE 4 TABLET(S) BY MOUTH EVERY DAY ON DAYS 1-14; OFF DAYS 15-28
     Route: 048
  6. VIDAZA [Concomitant]
     Active Substance: AZACITIDINE
     Indication: Product used for unknown indication
  7. Multivit with iron, Minerals (Complete Senior) [Concomitant]
     Indication: Product used for unknown indication
     Route: 048
  8. Ubidecarenone/Vit E Acet [Concomitant]
     Indication: Product used for unknown indication
     Dosage: CO Q-10 100 MG SOFTGEL
     Route: 048
  9. LIPITOR [Concomitant]
     Active Substance: ATORVASTATIN CALCIUM
     Indication: Product used for unknown indication
     Route: 048
  10. PRINIVIL [Concomitant]
     Active Substance: LISINOPRIL
     Indication: Product used for unknown indication
     Route: 048
  11. VITAMIN C [Concomitant]
     Active Substance: ASCORBIC ACID
     Indication: Product used for unknown indication
     Route: 048
  12. Omega-3 ratty Acids (Omega-3) [Concomitant]
     Indication: Product used for unknown indication
     Route: 048
  13. Mv-Mn/Iron/Folic Acid/Herb 190 (Vitamin D3 Complete Caplet) [Concomitant]
     Indication: Product used for unknown indication
     Route: 048

REACTIONS (2)
  - Myelodysplastic syndrome [Unknown]
  - Off label use [Unknown]

NARRATIVE: CASE EVENT DATE: 20210401
